FAERS Safety Report 7062657-9 (Version None)
Quarter: 2010Q4

REPORT INFORMATION
  Report Type: 
  Country: None (occurrence: None)
  Receive Date: 20101026
  Receipt Date: 20100108
  Transmission Date: 20110411
  Serious: Yes (Other)
  Sender: FDA-Public Use
  Company Number: US-PFIZER INC-2009305723

PATIENT
  Sex: Male

DRUGS (2)
  1. LIPITOR [Suspect]
     Dosage: 20 MG, UNK
  2. TRICOR [Suspect]

REACTIONS (2)
  - MOBILITY DECREASED [None]
  - RHABDOMYOLYSIS [None]
